FAERS Safety Report 4620724-0 (Version None)
Quarter: 2005Q1

REPORT INFORMATION
  Report Type: 
  Country: None (occurrence: None)
  Receive Date: 20050325
  Receipt Date: 20050315
  Transmission Date: 20050727
  Serious: Yes (Death)
  Sender: FDA-Public Use
  Company Number: PHEH2005US03130

PATIENT
  Age: 90 Year
  Sex: Female

DRUGS (12)
  1. VISUDYNE [Suspect]
     Indication: MACULAR DEGENERATION
     Dosage: 9.48 MG DAILY IV
     Route: 042
     Dates: start: 20050314, end: 20050314
  2. FOSAMAX [Concomitant]
  3. COUMADIN [Concomitant]
  4. URECHOLINE [Concomitant]
  5. ASPIRIN [Concomitant]
  6. DARVOCET [Concomitant]
  7. MOTRIN [Concomitant]
  8. PREVACID [Concomitant]
  9. OXYCONTIN [Concomitant]
  10. PROTONIX [Concomitant]
  11. VIOXX [Concomitant]
  12. LOPRESSOR [Concomitant]

REACTIONS (2)
  - CARDIO-RESPIRATORY ARREST [None]
  - COMA [None]
